FAERS Safety Report 11247468 (Version 8)
Quarter: 2015Q4

REPORT INFORMATION
  Report Type: Spontaneous
  Country: US (occurrence: US)
  Receive Date: 20150708
  Receipt Date: 20151211
  Transmission Date: 20160304
  Serious: Yes (Hospitalization)
  Sender: FDA-Public Use
  Company Number: US-PFIZER INC-2015222111

PATIENT
  Age: 65 Year
  Sex: Male
  Weight: 67 kg

DRUGS (10)
  1. OXYCODONE [Concomitant]
     Active Substance: OXYCODONE
     Dosage: UNK
  2. SUTENT [Suspect]
     Active Substance: SUNITINIB MALATE
     Dosage: 25 MG, CYCLIC: DAILY (28 DAYS ON/14 DAYS OFF)
     Route: 048
     Dates: start: 20150603
  3. SUTENT [Suspect]
     Active Substance: SUNITINIB MALATE
     Indication: METASTATIC RENAL CELL CARCINOMA
     Dosage: 37.5 MG, CYCLIC: 28 DAYS ON/14 DAYS OFF
     Route: 048
     Dates: start: 201505
  4. AMLODIPINE BESILATE [Suspect]
     Active Substance: AMLODIPINE BESYLATE
     Indication: HYPERTENSION
     Dosage: 5 MG, 1X/DAY
     Dates: start: 201505
  5. MIRALAX [Concomitant]
     Active Substance: POLYETHYLENE GLYCOL 3350
     Dosage: UNK
  6. KONDREMUL LAXATIVE [Concomitant]
     Dosage: UNK
  7. SENNA [Concomitant]
     Active Substance: SENNA LEAF\SENNOSIDES\SENNOSIDES A AND B
     Indication: FAECES SOFT
     Dosage: UNK
     Route: 048
  8. FLOMAX [Concomitant]
     Active Substance: TAMSULOSIN HYDROCHLORIDE
     Dosage: UNK
  9. SUTENT [Suspect]
     Active Substance: SUNITINIB MALATE
     Dosage: 25 MG, CYCLIC: DAILY (28 DAYS ON/14 DAYS OFF)
     Route: 048
     Dates: start: 201508
  10. AMLODIPINE [Concomitant]
     Active Substance: AMLODIPINE BESYLATE
     Dosage: UNK

REACTIONS (11)
  - Movement disorder [Recovering/Resolving]
  - Peripheral swelling [Not Recovered/Not Resolved]
  - Fatigue [Not Recovered/Not Resolved]
  - Rash [Recovered/Resolved]
  - Dysgeusia [Unknown]
  - Acne [Recovered/Resolved]
  - Muscular weakness [Recovering/Resolving]
  - Rheumatoid arthritis [Unknown]
  - Arthralgia [Recovering/Resolving]
  - Allergic cough [Not Recovered/Not Resolved]
  - Skin discolouration [Recovering/Resolving]

NARRATIVE: CASE EVENT DATE: 2015
